FAERS Safety Report 5220623-X (Version None)
Quarter: 2007Q1

REPORT INFORMATION
  Report Type: 
  Country: None (occurrence: None)
  Receive Date: 20070122
  Receipt Date: 20070109
  Transmission Date: 20070707
  Serious: Yes (Disabling, Other)
  Sender: FDA-Public Use
  Company Number: HQWYE890109JAN07

PATIENT
  Age: 71 Year
  Sex: Male

DRUGS (6)
  1. CORDARONE [Suspect]
     Indication: ATRIAL FIBRILLATION
     Dosage: ORAL
     Route: 048
     Dates: start: 20050301, end: 20060601
  2. COZAAR [Concomitant]
  3. BISOPROLOL FUMARATE [Concomitant]
  4. BISOPROLOL FUMARATE [Concomitant]
  5. PRIMASPAN (ACETYLSALICYLIC ACID) [Concomitant]
  6. DUREKAL (POTASSIUM CHLORIDE) [Concomitant]

REACTIONS (2)
  - PLEURAL EFFUSION [None]
  - RED BLOOD CELL SEDIMENTATION RATE INCREASED [None]
